FAERS Safety Report 5704485-X (Version None)
Quarter: 2008Q2

REPORT INFORMATION
  Report Type: 
  Country: None (occurrence: None)
  Receive Date: 20080409
  Receipt Date: 20080404
  Transmission Date: 20081010
  Serious: Yes (Hospitalization)
  Sender: FDA-Public Use
  Company Number: 2008SP006195

PATIENT
  Age: 17 Year
  Sex: Male
  Weight: 56.3 kg

DRUGS (7)
  1. TEMODAL [Suspect]
     Indication: ASTROCYTOMA
     Dosage: 285 MG;QD;PO, 290 MG,QD;PO
     Route: 048
     Dates: end: 20080212
  2. TEMODAL [Suspect]
     Indication: ASTROCYTOMA
     Dosage: 285 MG;QD;PO, 290 MG,QD;PO
     Route: 048
     Dates: start: 20070205
  3. ETOPOSIDE [Suspect]
     Indication: ASTROCYTOMA
     Dosage: 80 MG,QD;IV
     Route: 042
     Dates: start: 20070205, end: 20080215
  4. CODEINE SUL TAB [Concomitant]
  5. DIMENHYDRINATE [Concomitant]
  6. COTRIMOXAZOLE [Concomitant]
  7. ONDANSETRON [Concomitant]

REACTIONS (7)
  - BRAIN OEDEMA [None]
  - HEADACHE [None]
  - NEOPLASM PROGRESSION [None]
  - PHOTOPHOBIA [None]
  - TUMOUR HAEMORRHAGE [None]
  - TUMOUR NECROSIS [None]
  - VISUAL DISTURBANCE [None]
